FAERS Safety Report 9166287 (Version 2)
Quarter: 2013Q1

REPORT INFORMATION
  Report Type: Report from Study
  Country: US (occurrence: US)
  Receive Date: 20130315
  Receipt Date: 20130319
  Transmission Date: 20140127
  Serious: Yes (Hospitalization)
  Sender: FDA-Public Use
  Company Number: US-ABBOTT-13P-163-1059803-00

PATIENT
  Age: 79 Year
  Sex: Female

DRUGS (8)
  1. HUMIRA [Suspect]
     Indication: RHEUMATOID ARTHRITIS
     Dates: start: 20120224, end: 20120702
  2. HUMIRA [Suspect]
     Dates: start: 20130301
  3. UNKNOWN VITAMIN [Concomitant]
     Indication: VITAMIN SUPPLEMENTATION
     Dosage: 1 PER DAY
  4. HYDROCODONE [Concomitant]
     Indication: PAIN
     Dosage: 7.5 MG 3 PER DAY, ONLY TOOK 2
  5. ACTINOL [Concomitant]
     Indication: PRODUCT USED FOR UNKNOWN INDICATION
     Dosage: 1 PER MONTH
  6. DETROL [Concomitant]
     Indication: BLADDER DISORDER
     Dosage: 4 MG 1 PER DAY
  7. OMEPRAZOLE [Concomitant]
     Indication: PRODUCT USED FOR UNKNOWN INDICATION
     Dosage: 20 MG 1 PER DAY BEFORE BREAKFAST
  8. UNKNOWN STOOL SOFTENER [Concomitant]
     Indication: PRODUCT USED FOR UNKNOWN INDICATION
     Dosage: 1

REACTIONS (4)
  - Hypophagia [Unknown]
  - Fatigue [Unknown]
  - Skin ulcer [Unknown]
  - Tinea pedis [Unknown]
